FAERS Safety Report 8901895 (Version 1)
Quarter: 2012Q4

REPORT INFORMATION
  Report Type: Spontaneous
  Country: US (occurrence: None)
  Receive Date: 20121109
  Receipt Date: 20121109
  Transmission Date: 20130627
  Serious: Yes (Hospitalization)
  Sender: FDA-Public Use
  Company Number: None

PATIENT
  Sex: Male
  Weight: 96.6 kg

DRUGS (12)
  1. CISPLATIN [Suspect]
     Dates: end: 20120710
  2. VINORELBINE TARTRATE [Concomitant]
     Dates: end: 20120703
  3. ASPIRIN [Concomitant]
  4. ATENOLOL [Concomitant]
  5. ATORVASTATIN [Concomitant]
  6. CLEXANE [Concomitant]
  7. INNOHEP [Concomitant]
  8. MG VERDA [Concomitant]
  9. PARACETAMOL [Concomitant]
  10. PLAVIX [Concomitant]
  11. RBC 1 UNIT [Concomitant]
  12. SLOW K [Concomitant]

REACTIONS (4)
  - Blood pressure decreased [None]
  - Body temperature increased [None]
  - Troponin increased [None]
  - Deep vein thrombosis [None]
